FAERS Safety Report 10069906 (Version 1)
Quarter: 2014Q2

REPORT INFORMATION
  Report Type: Spontaneous
  Country: US (occurrence: None)
  Receive Date: 20140409
  Receipt Date: 20140409
  Transmission Date: 20141212
  Serious: Yes (Life-Threatening, Hospitalization, Other)
  Sender: FDA-Public Use
  Company Number: None

PATIENT
  Age: 66 Year
  Sex: Female
  Weight: 72.35 kg

DRUGS (14)
  1. CHOLESTYRAMINE [Suspect]
     Indication: DIARRHOEA
     Dosage: 1 SCOOP BY MOUTH WITH WARER EVERY 6 HRS.
     Route: 048
     Dates: start: 20140203, end: 20140204
  2. CHOLESTYRAMINE [Suspect]
     Indication: DIARRHOEA
     Dosage: 1 SCOOP BY MOUTH WITH WARER EVERY 6 HRS.
     Route: 048
     Dates: start: 20140203, end: 20140204
  3. CHOLESTYRAMINE [Suspect]
     Indication: DIARRHOEA
     Dosage: 1 SCOOP BY MOUTH WITH WARER EVERY 6 HRS.
     Route: 048
     Dates: start: 20140203, end: 20140204
  4. METOPROLOL [Concomitant]
  5. ZYNEX [Concomitant]
  6. ATORVASTATIN [Concomitant]
  7. CLONAZEPAM [Concomitant]
  8. LAMOTRIGINE [Concomitant]
  9. GABAPENTIN [Concomitant]
  10. MELATONIN [Concomitant]
  11. BABY ASPIRIN [Concomitant]
  12. ACETAMINOPHEN [Concomitant]
  13. CENTRUM VITAMIN [Concomitant]
  14. ICY-HOT CREAM [Concomitant]

REACTIONS (3)
  - Abdominal pain upper [None]
  - Urinary incontinence [None]
  - Vomiting [None]
